FAERS Safety Report 23515244 (Version 3)
Quarter: 2024Q1

REPORT INFORMATION
  Report Type: Report from Study
  Country: CA (occurrence: CA)
  Receive Date: 20240213
  Receipt Date: 20240322
  Transmission Date: 20240410
  Serious: Yes (Other)
  Sender: FDA-Public Use
  Company Number: CA-TAKEDA-2024TUS003271

PATIENT
  Age: 42 Year
  Sex: Male
  Weight: 75 kg

DRUGS (4)
  1. HUMAN IMMUNOGLOBULIN G [Suspect]
     Active Substance: HUMAN IMMUNOGLOBULIN G
     Indication: Primary immunodeficiency syndrome
     Dosage: 10 GRAM, 1/WEEK
     Route: 050
     Dates: start: 20240109
  2. HUMAN IMMUNOGLOBULIN G [Suspect]
     Active Substance: HUMAN IMMUNOGLOBULIN G
     Dosage: 10 GRAM, 1/WEEK
     Route: 058
  3. HUMAN IMMUNOGLOBULIN G [Suspect]
     Active Substance: HUMAN IMMUNOGLOBULIN G
     Dosage: 10 GRAM, 1/WEEK
     Route: 050
  4. HUMAN IMMUNOGLOBULIN G [Suspect]
     Active Substance: HUMAN IMMUNOGLOBULIN G
     Dosage: UNK UNK, 1/WEEK
     Route: 058

REACTIONS (29)
  - Arrhythmia [Unknown]
  - Pulmonary embolism [Unknown]
  - Urinary tract infection [Not Recovered/Not Resolved]
  - Headache [Recovering/Resolving]
  - Cardiac disorder [Unknown]
  - Sinusitis [Unknown]
  - Brain fog [Unknown]
  - Sinus congestion [Unknown]
  - Nasopharyngitis [Unknown]
  - Viral infection [Unknown]
  - Cystitis [Not Recovered/Not Resolved]
  - Hypersomnia [Unknown]
  - Weight decreased [Unknown]
  - Viral upper respiratory tract infection [Unknown]
  - Exercise tolerance decreased [Not Recovered/Not Resolved]
  - Orthopnoea [Unknown]
  - Decreased appetite [Unknown]
  - Pallor [Unknown]
  - Chest pain [Recovered/Resolved]
  - Asthenia [Unknown]
  - Lethargy [Not Recovered/Not Resolved]
  - Influenza like illness [Unknown]
  - Pyrexia [Unknown]
  - Chest discomfort [Unknown]
  - Dizziness [Unknown]
  - Night sweats [Unknown]
  - Palpitations [Unknown]
  - Respiratory rate increased [Unknown]
  - Pain [Not Recovered/Not Resolved]

NARRATIVE: CASE EVENT DATE: 20240101
